FAERS Safety Report 8516837-3 (Version None)
Quarter: 2012Q3

REPORT INFORMATION
  Report Type: 
  Country: None (occurrence: None)
  Receive Date: 20120706
  Receipt Date: 20120628
  Transmission Date: 20120928
  Serious: Yes (Death, Life-Threatening)
  Sender: FDA-Public Use
  Company Number: DAV-AE-MTX-12-55

PATIENT
  Sex: Female

DRUGS (1)
  1. METHOTREXATE [Suspect]
     Indication: ACUTE LYMPHOCYTIC LEUKAEMIA
     Dosage: UNKNOWN, INTRATHECAL
     Route: 037

REACTIONS (6)
  - HEADACHE [None]
  - VOMITING [None]
  - RESPIRATORY FAILURE [None]
  - PROGRESSIVE MULTIFOCAL LEUKOENCEPHALOPATHY [None]
  - ARACHNOIDITIS [None]
  - MENTAL STATUS CHANGES [None]
